FAERS Safety Report 10358547 (Version 1)
Quarter: 2014Q3

REPORT INFORMATION
  Report Type: Spontaneous
  Country: US (occurrence: US)
  Receive Date: 20140802
  Receipt Date: 20140802
  Transmission Date: 20150326
  Serious: Yes (Other)
  Sender: FDA-Public Use
  Company Number: US-AMGEN-USASP2014057245

PATIENT
  Sex: Female
  Weight: 53.52 kg

DRUGS (1)
  1. PROLIA [Suspect]
     Active Substance: DENOSUMAB
     Indication: OSTEOPOROSIS POSTMENOPAUSAL
     Route: 065

REACTIONS (13)
  - Oophorectomy [Unknown]
  - Spinal deformity [Unknown]
  - Dyspnoea [Unknown]
  - Hyperlipidaemia [Unknown]
  - Oestrogen deficiency [Unknown]
  - Fracture [Unknown]
  - Bone density abnormal [Unknown]
  - Painful respiration [Unknown]
  - Hypertension [Unknown]
  - Surgery [Unknown]
  - Osteoporosis [Unknown]
  - Hysterectomy [Unknown]
  - Back pain [Unknown]
